FAERS Safety Report 7759527-7 (Version None)
Quarter: 2011Q3

REPORT INFORMATION
  Report Type: 
  Country: None (occurrence: None)
  Receive Date: 20110919
  Receipt Date: 20110919
  Transmission Date: 20111222
  Serious: Yes (Life-Threatening, Hospitalization, Disabling, Other)
  Sender: FDA-Public Use
  Company Number: None

PATIENT
  Age: 35 Year
  Sex: Male
  Weight: 68.038 kg

DRUGS (1)
  1. ZYVOX [Suspect]
     Indication: MYCOBACTERIUM AVIUM COMPLEX INFECTION
     Dosage: ??
     Route: 048

REACTIONS (19)
  - IMPAIRED WORK ABILITY [None]
  - METABOLIC ACIDOSIS [None]
  - JOINT SWELLING [None]
  - HAEMOGLOBIN DECREASED [None]
  - MULTI-ORGAN FAILURE [None]
  - RENAL DISORDER [None]
  - OEDEMA PERIPHERAL [None]
  - DEPRESSION [None]
  - WEIGHT DECREASED [None]
  - LUNG DISORDER [None]
  - FATIGUE [None]
  - NAUSEA [None]
  - PAIN [None]
  - LIVER INJURY [None]
  - HEADACHE [None]
  - INSOMNIA [None]
  - PNEUMONIA [None]
  - CARDIOVASCULAR DISORDER [None]
  - DYSPNOEA [None]
